FAERS Safety Report 25325496 (Version 1)
Quarter: 2025Q2

REPORT INFORMATION
  Report Type: Spontaneous
  Country: CA (occurrence: CA)
  Receive Date: 20250516
  Receipt Date: 20250516
  Transmission Date: 20250716
  Serious: Yes (Death)
  Sender: MYLAN
  Company Number: CA-MYLANLABS-2025M1041719

PATIENT
  Age: 65 Year
  Sex: Female

DRUGS (4)
  1. REVATIO [Suspect]
     Active Substance: SILDENAFIL CITRATE
     Indication: Pulmonary arterial hypertension
     Dosage: 20 MILLIGRAM, TID (3 TIMES A DAY)
     Dates: start: 20250311, end: 20250513
  2. REVATIO [Suspect]
     Active Substance: SILDENAFIL CITRATE
     Dosage: 20 MILLIGRAM, TID (3 TIMES A DAY)
     Route: 048
     Dates: start: 20250311, end: 20250513
  3. REVATIO [Suspect]
     Active Substance: SILDENAFIL CITRATE
     Dosage: 20 MILLIGRAM, TID (3 TIMES A DAY)
     Route: 048
     Dates: start: 20250311, end: 20250513
  4. REVATIO [Suspect]
     Active Substance: SILDENAFIL CITRATE
     Dosage: 20 MILLIGRAM, TID (3 TIMES A DAY)
     Dates: start: 20250311, end: 20250513

REACTIONS (1)
  - Death [Fatal]

NARRATIVE: CASE EVENT DATE: 20250513
